FAERS Safety Report 25845044 (Version 1)
Quarter: 2025Q3

REPORT INFORMATION
  Report Type: Spontaneous
  Country: EU (occurrence: EU)
  Receive Date: 20250925
  Receipt Date: 20250925
  Transmission Date: 20251020
  Serious: Yes (Hospitalization, Other)
  Sender: BRISTOL-MYERS SQUIBB COMPANY
  Company Number: None

PATIENT
  Age: 79 Year
  Sex: Female
  Weight: 94 kg

DRUGS (11)
  1. OPDIVO [Suspect]
     Active Substance: NIVOLUMAB
     Indication: Metastatic renal cell carcinoma
  2. PANTOPRAZOLE [Concomitant]
     Active Substance: PANTOPRAZOLE
     Indication: Gastrooesophageal reflux disease
     Dates: start: 2023
  3. POTASSIUM CHLORIDE [Concomitant]
     Active Substance: POTASSIUM CHLORIDE
     Indication: Mineral supplementation
     Dates: start: 20240821
  4. FERROUS FUMARATE [Concomitant]
     Active Substance: FERROUS FUMARATE
     Indication: Mineral supplementation
  5. MOXONIDINE [Concomitant]
     Active Substance: MOXONIDINE
     Indication: Hypertension
     Dates: start: 20250324
  6. CARVEDILOL [Concomitant]
     Active Substance: CARVEDILOL
     Indication: Hypertension
     Dates: start: 20250211
  7. LERCANIDIPINE [Concomitant]
     Active Substance: LERCANIDIPINE
     Indication: Hypertension
     Dates: start: 20250626
  8. LEVOTHYROXINE [Concomitant]
     Active Substance: LEVOTHYROXINE
     Indication: Hypothyroidism
     Dosage: 100-200 MICROGRAM ONCE DAILY
     Dates: start: 2023
  9. PREDNISOLONE [Concomitant]
     Active Substance: PREDNISOLONE
     Indication: Adrenocortical steroid therapy
  10. PREDNISOLONE [Concomitant]
     Active Substance: PREDNISOLONE
     Dosage: 2.5 MG EVERY OTHER DAY, 5 MG EVERY OTHER DAY
     Dates: start: 20241121
  11. HYDROCHLOROTHIAZIDE, LOSARTAN POTASSIUM [Concomitant]
     Indication: Hypertension
     Dosage: 100+25 MG ONCE DAILY
     Dates: start: 2017

REACTIONS (8)
  - Oral mucosal blistering [Recovering/Resolving]
  - Conjunctivitis [Recovered/Resolved]
  - Immunotoxicity [Recovering/Resolving]
  - Mucosal inflammation [Recovering/Resolving]
  - Drug-induced liver injury [Recovering/Resolving]
  - Myelosuppression [Recovering/Resolving]
  - Ocular hyperaemia [Recovered/Resolved]
  - Oral pain [Recovering/Resolving]

NARRATIVE: CASE EVENT DATE: 20250808
